FAERS Safety Report 10081159 (Version 2)
Quarter: 2014Q2

REPORT INFORMATION
  Report Type: Spontaneous
  Country: US (occurrence: US)
  Receive Date: 20140416
  Receipt Date: 20140423
  Transmission Date: 20141212
  Serious: No
  Sender: FDA-Public Use
  Company Number: US-009507513-1403USA011689

PATIENT
  Age: 65 Year
  Sex: Female
  Weight: 65.76 kg

DRUGS (11)
  1. OXYTROL FOR WOMEN [Suspect]
     Indication: HYPERTONIC BLADDER
     Dosage: 2 DF, UNKNOWN
     Route: 062
     Dates: start: 20140308, end: 20140325
  2. OXYTROL FOR WOMEN [Suspect]
     Indication: INCONTINENCE
  3. OXYTROL FOR WOMEN [Suspect]
     Indication: URGE INCONTINENCE
  4. RANITIDINE [Concomitant]
     Indication: GASTROOESOPHAGEAL REFLUX DISEASE
     Dosage: 150 MG, BID
     Route: 048
  5. OXYBUTYNIN [Concomitant]
     Indication: URGE INCONTINENCE
     Dosage: 2.5 MG, QID
  6. LYRICA [Concomitant]
     Indication: PAIN
     Dosage: UNK, UNKNOWN
  7. LAMICTAL [Concomitant]
     Indication: PRODUCT USED FOR UNKNOWN INDICATION
     Dosage: 280 MG, HS
  8. TRAZODONE HYDROCHLORIDE [Concomitant]
     Indication: MAJOR DEPRESSION
     Dosage: 400 MG, HS
  9. CLONAZEPAM [Concomitant]
     Indication: ANXIETY DISORDER
     Dosage: 0.5 MG, BID
  10. VITAMIN D (UNSPECIFIED) [Concomitant]
     Indication: PRODUCT USED FOR UNKNOWN INDICATION
     Dosage: 1500 IU, QOD
  11. INDERAL [Concomitant]
     Indication: PALPITATIONS
     Dosage: 40 MG, QD

REACTIONS (5)
  - Overdose [Unknown]
  - Wrong technique in drug usage process [Unknown]
  - Inappropriate schedule of drug administration [Unknown]
  - Off label use [Unknown]
  - Drug ineffective [Unknown]
